FAERS Safety Report 5929488-1 (Version None)
Quarter: 2008Q4

REPORT INFORMATION
  Report Type: 
  Country: None (occurrence: None)
  Receive Date: 20081024
  Receipt Date: 20081014
  Transmission Date: 20090506
  Serious: Yes (Other)
  Sender: FDA-Public Use
  Company Number: IT-JNJFOC-20081004541

PATIENT

DRUGS (1)
  1. INFLIXIMAB [Suspect]
     Indication: POLYARTHRITIS
     Dosage: 3 TO 5 MG/KG INFUSED OVER 2 HOURS AT WEEKS 0, 2, 6, THEN EVERY 8 WEEKS
     Route: 042

REACTIONS (2)
  - INFUSION RELATED REACTION [None]
  - VENTRICULAR TACHYCARDIA [None]
